FAERS Safety Report 24697167 (Version 1)
Quarter: 2024Q4

REPORT INFORMATION
  Report Type: Spontaneous
  Country: CN (occurrence: CN)
  Receive Date: 20241204
  Receipt Date: 20241204
  Transmission Date: 20250115
  Serious: Yes (Hospitalization, Other)
  Sender: PFIZER
  Company Number: CN-PFIZER INC-PV202400155788

PATIENT
  Age: 54 Year
  Sex: Female
  Weight: 63 kg

DRUGS (3)
  1. CYTARABINE [Suspect]
     Active Substance: CYTARABINE
     Indication: Acute myeloid leukaemia
     Dosage: 0.163 G, 1X/DAY
     Route: 041
     Dates: start: 20240829, end: 20240831
  2. CYTARABINE [Suspect]
     Active Substance: CYTARABINE
     Dosage: 0.163 G, 1X/DAY
     Route: 041
     Dates: start: 20240901, end: 20240904
  3. SODIUM CHLORIDE [Concomitant]
     Active Substance: SODIUM CHLORIDE
     Indication: Vehicle solution use
     Dosage: 250 ML, 1X/DAY
     Route: 041
     Dates: start: 20240829, end: 20240904

REACTIONS (1)
  - Cytopenia [Recovering/Resolving]

NARRATIVE: CASE EVENT DATE: 20240905
